FAERS Safety Report 14198351 (Version 1)
Quarter: 2017Q4

REPORT INFORMATION
  Report Type: Spontaneous
  Country: US (occurrence: US)
  Receive Date: 20171116
  Receipt Date: 20171116
  Transmission Date: 20180321
  Serious: No
  Sender: FDA-Public Use
  Company Number: None

PATIENT
  Age: 55 Year
  Sex: Female
  Weight: 66.6 kg

DRUGS (2)
  1. EOVIST [Suspect]
     Active Substance: GADOXETATE DISODIUM
     Indication: NEOPLASM MALIGNANT
     Dosage: ?          OTHER FREQUENCY:ONCE;?
     Route: 042
     Dates: start: 20171114, end: 20171114
  2. EOVIST [Suspect]
     Active Substance: GADOXETATE DISODIUM
     Indication: MEMORY IMPAIRMENT
     Dosage: ?          OTHER FREQUENCY:ONCE;?
     Route: 042
     Dates: start: 20171114, end: 20171114

REACTIONS (1)
  - Wrong drug administered [None]

NARRATIVE: CASE EVENT DATE: 20171114
